FAERS Safety Report 6409262-2 (Version None)
Quarter: 2009Q4

REPORT INFORMATION
  Report Type: 
  Country: None (occurrence: None)
  Receive Date: 20091019
  Receipt Date: 20091019
  Transmission Date: 20100525
  Serious: Yes (Life-Threatening)
  Sender: FDA-Public Use
  Company Number: None

PATIENT
  Age: 21 Year
  Sex: Female
  Weight: 87.0906 kg

DRUGS (1)
  1. DEXFERRUM [Suspect]
     Indication: ANAEMIA
     Dosage: 1000MG IN 250ML NS SINGLE DOSE IV
     Route: 042
     Dates: start: 20091015, end: 20091015

REACTIONS (1)
  - DRUG HYPERSENSITIVITY [None]
